FAERS Safety Report 9611583 (Version 1)
Quarter: 2013Q4

REPORT INFORMATION
  Report Type: Spontaneous
  Country: ES (occurrence: ES)
  Receive Date: 20131010
  Receipt Date: 20131010
  Transmission Date: 20140711
  Serious: Yes (Other)
  Sender: FDA-Public Use
  Company Number: PHHY2013ES113207

PATIENT
  Age: 79 Year
  Sex: Male

DRUGS (1)
  1. ZOMETA [Suspect]
     Indication: METASTASES TO BONE
     Dosage: UNK UKN, UNK
     Route: 042
     Dates: start: 2011, end: 2013

REACTIONS (1)
  - Osteonecrosis of jaw [Not Recovered/Not Resolved]
